FAERS Safety Report 4393228-0 (Version None)
Quarter: 2004Q3

REPORT INFORMATION
  Report Type: 
  Country: None (occurrence: None)
  Receive Date: 20040702
  Receipt Date: 20040628
  Transmission Date: 20050211
  Serious: Yes (Hospitalization)
  Sender: FDA-Public Use
  Company Number: US-JNJFOC-20040608318

PATIENT
  Age: 89 Year
  Sex: Male

DRUGS (5)
  1. REMINYL [Suspect]
     Indication: DEMENTIA ALZHEIMER'S TYPE
     Dosage: 24 MG, 1 IN 1 DAY, ORAL
     Route: 048
     Dates: start: 20040622, end: 20040625
  2. PLAVIX [Concomitant]
  3. PROVACHOL (CHOLESTEROL- AND TRIGLYCERIDES REDUCERS) [Concomitant]
  4. FLOMAX [Concomitant]
  5. BETAPACE [Concomitant]

REACTIONS (3)
  - DEHYDRATION [None]
  - LOOSE STOOLS [None]
  - PYREXIA [None]
